FAERS Safety Report 4678550-2 (Version None)
Quarter: 2005Q2

REPORT INFORMATION
  Report Type: 
  Country: None (occurrence: None)
  Receive Date: 20050601
  Receipt Date: 20050516
  Transmission Date: 20051028
  Serious: Yes (Life-Threatening, Hospitalization, Disabling)
  Sender: FDA-Public Use
  Company Number: BE-MERCK-0505BEL00064

PATIENT
  Age: 64 Year
  Sex: Female
  Weight: 98 kg

DRUGS (8)
  1. AMOXICILLIN AND CLAVULANATE POTASSIUM [Concomitant]
     Indication: INFECTION
     Route: 048
     Dates: start: 20050405, end: 20050410
  2. METHYLPREDNISOLONE [Concomitant]
     Indication: ASTHMA
     Route: 048
     Dates: start: 20050405
  3. THEOPHYLLINE [Concomitant]
     Indication: ASTHMA
     Route: 048
     Dates: start: 20000501
  4. ASPIRIN [Concomitant]
     Indication: PROPHYLAXIS
     Route: 048
     Dates: start: 20000501
  5. CAPTOPRIL [Concomitant]
     Indication: HYPERTENSION
     Route: 048
     Dates: start: 20000501
  6. BUDESONIDE AND FORMOTEROL FUMARATE [Concomitant]
     Indication: ASTHMA
     Route: 055
     Dates: start: 20000501
  7. TIOTROPIUM BROMIDE [Concomitant]
     Indication: ASTHMA
     Route: 055
     Dates: start: 20000601
  8. SINGULAIR [Suspect]
     Indication: ASTHMA
     Route: 048
     Dates: start: 20041125, end: 20050410

REACTIONS (2)
  - LUNG INFECTION [None]
  - RESPIRATORY FAILURE [None]
